FAERS Safety Report 18219764 (Version 1)
Quarter: 2020Q3

REPORT INFORMATION
  Report Type: Report from Study
  Country: FR (occurrence: FR)
  Receive Date: 20200901
  Receipt Date: 20200901
  Transmission Date: 20201103
  Serious: Yes (Life-Threatening, Hospitalization, Disabling, Other)
  Sender: FDA-Public Use
  Company Number: FR-SA-2020SA228574

PATIENT

DRUGS (2)
  1. ISATUXIMAB [Suspect]
     Active Substance: ISATUXIMAB
     Dosage: 10 MG/KG, Q2M
     Route: 042
     Dates: start: 20200415, end: 20200415
  2. ISATUXIMAB [Suspect]
     Active Substance: ISATUXIMAB
     Indication: PLASMA CELL MYELOMA
     Dosage: 10 MG/KG, Q2M
     Route: 042
     Dates: start: 20200203, end: 20200203

REACTIONS (2)
  - COVID-19 [Recovered/Resolved with Sequelae]
  - Therapeutic response decreased [Unknown]

NARRATIVE: CASE EVENT DATE: 20200425
